FAERS Safety Report 6935214-X (Version None)
Quarter: 2010Q3

REPORT INFORMATION
  Report Type: 
  Country: None (occurrence: None)
  Receive Date: 20100822
  Receipt Date: 20100817
  Transmission Date: 20110219
  Serious: Yes (Death)
  Sender: FDA-Public Use
  Company Number: PHHY2010US54478

PATIENT
  Sex: Male

DRUGS (5)
  1. GLEEVEC [Suspect]
     Indication: CHRONIC MYELOID LEUKAEMIA
     Dosage: 300 MG
     Route: 048
     Dates: start: 20070330, end: 20100713
  2. IBUPROFEN [Concomitant]
  3. LOVASTIN [Concomitant]
  4. METFORMIN [Concomitant]
  5. ATACAND [Concomitant]

REACTIONS (1)
  - DEATH [None]
